FAERS Safety Report 6322095-0 (Version None)
Quarter: 2009Q3

REPORT INFORMATION
  Report Type: 
  Country: None (occurrence: None)
  Receive Date: 20090821
  Receipt Date: 20090821
  Transmission Date: 20100115
  Serious: Yes (Disabling, Other)
  Sender: FDA-Public Use
  Company Number: None

PATIENT
  Age: 68 Year
  Sex: Female
  Weight: 80.7403 kg

DRUGS (2)
  1. ADVAIR DISKUS 250/50 [Suspect]
     Indication: ASTHMA
     Dosage: DAILY PRE MEASURED BID INHAL
     Route: 055
     Dates: start: 20090320, end: 20090603
  2. ADVAIR DISKUS 250/50 [Suspect]
     Indication: DYSPNOEA
     Dosage: DAILY PRE MEASURED BID INHAL
     Route: 055
     Dates: start: 20090320, end: 20090603

REACTIONS (3)
  - ACTIVITIES OF DAILY LIVING IMPAIRED [None]
  - APHONIA [None]
  - LARYNGITIS [None]
